FAERS Safety Report 20545338 (Version 1)
Quarter: 2022Q1

REPORT INFORMATION
  Report Type: Spontaneous
  Country: US (occurrence: US)
  Receive Date: 20220303
  Receipt Date: 20220303
  Transmission Date: 20220423
  Serious: No
  Sender: FDA-Public Use
  Company Number: US-AVET LIFESCIENCES LTD-2022-AVET-000039

PATIENT

DRUGS (3)
  1. NIMODIPINE [Suspect]
     Active Substance: NIMODIPINE
     Indication: Reversible cerebral vasoconstriction syndrome
     Dosage: 30 MILLIGRAM, 6 TIMES A DAY(EVERY Q4H 30MG CAPSULE)
     Dates: start: 20211122
  2. NIMODIPINE [Suspect]
     Active Substance: NIMODIPINE
     Indication: Haemorrhage
  3. LORAZEPAM [Concomitant]
     Active Substance: LORAZEPAM

REACTIONS (6)
  - Dyspnoea [Not Recovered/Not Resolved]
  - Hypotension [Not Recovered/Not Resolved]
  - Feeling abnormal [Not Recovered/Not Resolved]
  - Panic attack [Not Recovered/Not Resolved]
  - Dizziness [Not Recovered/Not Resolved]
  - Anxiety [Not Recovered/Not Resolved]

NARRATIVE: CASE EVENT DATE: 20211122
